FAERS Safety Report 9765251 (Version 1)
Quarter: 2013Q4

REPORT INFORMATION
  Report Type: Spontaneous
  Country: US (occurrence: US)
  Receive Date: 20131217
  Receipt Date: 20131217
  Transmission Date: 20140711
  Serious: No
  Sender: FDA-Public Use
  Company Number: US-GLAXOSMITHKLINE-A1004373A

PATIENT
  Age: 60 Year
  Sex: Male

DRUGS (5)
  1. VOTRIENT [Suspect]
     Indication: RENAL CELL CARCINOMA
     Dosage: 4TAB PER DAY
     Route: 048
     Dates: start: 20121106
  2. PERCOCET [Concomitant]
  3. ONDANSETRON [Concomitant]
  4. VITAMINS [Concomitant]
  5. CALCIUM [Concomitant]

REACTIONS (3)
  - Rash pruritic [Unknown]
  - Nausea [Unknown]
  - Cystitis [Not Recovered/Not Resolved]
